FAERS Safety Report 13539485 (Version 11)
Quarter: 2018Q2

REPORT INFORMATION
  Report Type: Spontaneous
  Country: US (occurrence: US)
  Receive Date: 20170512
  Receipt Date: 20180410
  Transmission Date: 20180711
  Serious: No
  Sender: FDA-Public Use
  Company Number: US-PFIZER INC-2017209995

PATIENT
  Age: 81 Year
  Sex: Female
  Weight: 61 kg

DRUGS (5)
  1. IBRANCE [Suspect]
     Active Substance: PALBOCICLIB
     Indication: BREAST CANCER METASTATIC
     Dosage: 125 MG, DAILY (FOR 21 DAYS)
     Route: 048
     Dates: start: 201612
  2. IBRANCE [Suspect]
     Active Substance: PALBOCICLIB
     Dosage: 100 MG, CYCLIC (PER DAY FOR 21 DAYS, OFF FOR ONE WEEK, THEN BACK ON)
     Route: 048
  3. IBRANCE [Suspect]
     Active Substance: PALBOCICLIB
     Dosage: 125 MG, CYCLIC (ONCE A DAY FOR 21 DAYS THEN OFF 7 DAYS)
     Route: 048
     Dates: start: 201704
  4. IBRANCE [Suspect]
     Active Substance: PALBOCICLIB
     Dosage: 100 MG, CYCLIC (1 PILL DAILY FOR 21 DAYS AND THEN OFF FOR THE NEXT 7 DAYS)
     Route: 048
     Dates: start: 20161205
  5. IBRANCE [Suspect]
     Active Substance: PALBOCICLIB
     Dosage: 100 MG, 1X/DAY
     Route: 048
     Dates: start: 2017

REACTIONS (15)
  - Tooth loss [Not Recovered/Not Resolved]
  - Urinary tract infection [Unknown]
  - Full blood count decreased [Unknown]
  - Back pain [Unknown]
  - Nausea [Unknown]
  - Asthenia [Unknown]
  - Anosmia [Recovering/Resolving]
  - Malaise [Unknown]
  - Tooth fracture [Unknown]
  - White blood cell count decreased [Not Recovered/Not Resolved]
  - Chromaturia [Recovering/Resolving]
  - Genital infection fungal [Not Recovered/Not Resolved]
  - Asthenia [Recovering/Resolving]
  - Constipation [Unknown]
  - Haemorrhoids [Unknown]

NARRATIVE: CASE EVENT DATE: 2017
